FAERS Safety Report 11072336 (Version 1)
Quarter: 2015Q2

REPORT INFORMATION
  Report Type: Spontaneous
  Country: US (occurrence: None)
  Receive Date: 20150427
  Receipt Date: 20150427
  Transmission Date: 20150821
  Serious: Yes (Disabling, Other)
  Sender: FDA-Public Use
  Company Number: None

PATIENT
  Age: 33 Year
  Sex: Female
  Weight: 95.26 kg

DRUGS (3)
  1. ABILIFY [Concomitant]
     Active Substance: ARIPIPRAZOLE
  2. SUBOXONE [Suspect]
     Active Substance: BUPRENORPHINE HYDROCHLORIDE\NALOXONE HYDROCHLORIDE
     Indication: DRUG DEPENDENCE
     Dosage: 1  1/2    THREE TIMES DAILY TAKEN UNDER THE TONGUE
     Route: 060
     Dates: start: 20150208, end: 20150425
  3. EFFEXOR [Concomitant]
     Active Substance: VENLAFAXINE HYDROCHLORIDE

REACTIONS (6)
  - Application site pain [None]
  - Application site vesicles [None]
  - Muscle tightness [None]
  - Application site swelling [None]
  - Candida infection [None]
  - Application site haemorrhage [None]

NARRATIVE: CASE EVENT DATE: 20150401
